FAERS Safety Report 9944797 (Version 1)
Quarter: 2014Q1

REPORT INFORMATION
  Report Type: Spontaneous
  Country: US (occurrence: US)
  Receive Date: 20140303
  Receipt Date: 20140303
  Transmission Date: 20141002
  Serious: No
  Sender: FDA-Public Use
  Company Number: US-ABBVIE-13P-163-1054078-00

PATIENT
  Age: 21 Year
  Sex: Female
  Weight: 52.21 kg

DRUGS (2)
  1. HUMIRA [Suspect]
     Indication: CROHN^S DISEASE
     Route: 058
     Dates: start: 201208
  2. CELEXA [Concomitant]
     Indication: ANXIETY

REACTIONS (3)
  - Abdominal pain [Unknown]
  - Drug effect decreased [Unknown]
  - Diarrhoea [Unknown]
